FAERS Safety Report 4411314-3 (Version None)
Quarter: 2004Q3

REPORT INFORMATION
  Report Type: 
  Country: None (occurrence: None)
  Receive Date: 20040727
  Receipt Date: 20040715
  Transmission Date: 20050211
  Serious: Yes (Disabling)
  Sender: FDA-Public Use
  Company Number: 2004-117887-NL

PATIENT
  Age: 6 Month
  Sex: Male

DRUGS (8)
  1. VECURONIUM BROMIDE [Suspect]
     Indication: MUSCLE RELAXANT THERAPY
     Dosage: 5 MG INTRAVENOUS (NOS)
     Route: 042
     Dates: start: 20030709, end: 20030709
  2. FENTANYL [Suspect]
     Indication: GENERAL ANAESTHESIA
     Dosage: 150 UG INTRAVENOUS DRIP
     Route: 041
     Dates: start: 20030709
  3. SEVOFLURANE [Suspect]
     Indication: GENERAL ANAESTHESIA
     Dosage: RESPIRATORY (INHALATION)
     Route: 055
     Dates: start: 20030709, end: 20030709
  4. MIDAZOLAM [Concomitant]
  5. NITROUS OXIDE [Concomitant]
  6. CEFAZOLIN [Concomitant]
  7. DOPAMINE HCL [Concomitant]
  8. NITROGLYCERIN [Concomitant]

REACTIONS (8)
  - ACIDOSIS [None]
  - ANAESTHETIC COMPLICATION [None]
  - CARDIAC ARREST [None]
  - DEVELOPMENTAL DELAY [None]
  - DIALYSIS [None]
  - HYPERKALAEMIA [None]
  - HYPERTHERMIA MALIGNANT [None]
  - RESPIRATORY DISTRESS [None]
